FAERS Safety Report 9913569 (Version 1)
Quarter: 2014Q1

REPORT INFORMATION
  Report Type: Spontaneous
  Country: US (occurrence: None)
  Receive Date: 20140218
  Receipt Date: 20140218
  Transmission Date: 20141002
  Serious: Yes (Other)
  Sender: FDA-Public Use
  Company Number: VAL_02912_2014

PATIENT
  Age: 23 Year
  Sex: Female
  Weight: 109 kg

DRUGS (1)
  1. METOPROLOL [Suspect]
     Indication: ATRIAL FIBRILLATION
     Dosage: DF
     Route: 042

REACTIONS (3)
  - Atrial fibrillation [None]
  - Exposure during pregnancy [None]
  - Drug effect incomplete [None]
